FAERS Safety Report 5677845-3 (Version None)
Quarter: 2008Q1

REPORT INFORMATION
  Report Type: 
  Country: None (occurrence: None)
  Receive Date: 20080319
  Receipt Date: 20080307
  Transmission Date: 20080703
  Serious: Yes (Hospitalization)
  Sender: FDA-Public Use
  Company Number: S08-USA-00918-01

PATIENT
  Age: 70 Year
  Sex: Female

DRUGS (4)
  1. LEXAPRO [Suspect]
     Dates: start: 20080206, end: 20080206
  2. COUMADIN [Concomitant]
  3. OXYGEN [Concomitant]
  4. INHALERS (NOS) [Concomitant]

REACTIONS (4)
  - BALANCE DISORDER [None]
  - CONTUSION [None]
  - DIZZINESS [None]
  - FALL [None]
